FAERS Safety Report 18523111 (Version 4)
Quarter: 2021Q1

REPORT INFORMATION
  Report Type: Report from Study
  Country: GB (occurrence: GB)
  Receive Date: 20201119
  Receipt Date: 20210318
  Transmission Date: 20210419
  Serious: Yes (Other)
  Sender: FDA-Public Use
  Company Number: GB-JNJFOC-20201122651

PATIENT
  Age: 68 Year
  Sex: Female

DRUGS (1)
  1. STELARA [Suspect]
     Active Substance: USTEKINUMAB
     Indication: CROHN^S DISEASE
     Dosage: 45 MG
     Route: 058
     Dates: start: 20190807

REACTIONS (5)
  - Intercepted product dispensing error [Unknown]
  - Pain in extremity [Unknown]
  - Skin cancer [Unknown]
  - Product prescribing error [Unknown]
  - Product dose omission issue [Unknown]
